FAERS Safety Report 17166687 (Version 2)
Quarter: 2025Q3

REPORT INFORMATION
  Report Type: Spontaneous
  Country: US (occurrence: US)
  Receive Date: 20191217
  Receipt Date: 20250731
  Transmission Date: 20251020
  Serious: No
  Sender: SEPTODONT
  Company Number: US-SEPTODONT-201905390

PATIENT

DRUGS (1)
  1. MEPIVACAINE [Suspect]
     Active Substance: MEPIVACAINE HYDROCHLORIDE
     Indication: Dental local anaesthesia

REACTIONS (2)
  - Wrong product administered [Unknown]
  - Therapeutic product effect delayed [Unknown]
